FAERS Safety Report 22611579 (Version 1)
Quarter: 2023Q2

REPORT INFORMATION
  Report Type: Spontaneous
  Country: BE (occurrence: BE)
  Receive Date: 20230616
  Receipt Date: 20230616
  Transmission Date: 20230721
  Serious: Yes (Hospitalization, Other)
  Sender: FDA-Public Use
  Company Number: BE-FreseniusKabi-FK202308916

PATIENT
  Age: 50 Year
  Sex: Male

DRUGS (14)
  1. ACETAMINOPHEN [Suspect]
     Active Substance: ACETAMINOPHEN
     Indication: Pyrexia
     Dosage: MAX 4 GRAMS Q24H
  2. ACETAMINOPHEN [Suspect]
     Active Substance: ACETAMINOPHEN
     Dosage: (WEEK 20)
  3. IBUPROFEN [Suspect]
     Active Substance: IBUPROFEN
     Indication: Pyrexia
     Dosage: MAX 1800MG Q24H
  4. IBUPROFEN [Suspect]
     Active Substance: IBUPROFEN
     Dosage: (WEEK 20)
  5. DABRAFENIB [Suspect]
     Active Substance: DABRAFENIB
     Indication: Metastatic malignant melanoma
     Dosage: 150MG
  6. DABRAFENIB [Suspect]
     Active Substance: DABRAFENIB
     Dosage: TREATMENT WAS RESUMED ON WEEK 14 WITH A LEVEL 2 DOSE REDUCTION (DABRAFENIB 75 MG BID)
  7. DABRAFENIB [Suspect]
     Active Substance: DABRAFENIB
     Dosage: 100MG (WEEK 18)
  8. DABRAFENIB [Suspect]
     Active Substance: DABRAFENIB
     Dosage: WEEK 22
  9. TRAMETINIB [Suspect]
     Active Substance: TRAMETINIB
     Indication: Metastatic malignant melanoma
  10. TRAMETINIB [Suspect]
     Active Substance: TRAMETINIB
     Dosage: TREATMENT WAS RESUMED ON WEEK 14 WITH A LEVEL 2 DOSE REDUCTION (TRAMETINIB 1 MG QD)
  11. TRAMETINIB [Suspect]
     Active Substance: TRAMETINIB
     Dosage: 1.5MG (WEEK 18)
  12. TRAMETINIB [Suspect]
     Active Substance: TRAMETINIB
     Dosage: WEEK 22
  13. COTRIMOXAZOLE [Suspect]
     Active Substance: SULFAMETHOXAZOLE\TRIMETHOPRIM
     Indication: Antifungal prophylaxis
     Dosage: 800MG/160MG
  14. PANTOPRAZOLE [Suspect]
     Active Substance: PANTOPRAZOLE
     Indication: Antacid therapy

REACTIONS (1)
  - Tubulointerstitial nephritis [Recovered/Resolved]
